FAERS Safety Report 14252498 (Version 1)
Quarter: 2017Q4

REPORT INFORMATION
  Report Type: Spontaneous
  Country: FR (occurrence: FR)
  Receive Date: 20171205
  Receipt Date: 20171205
  Transmission Date: 20180321
  Serious: Yes (Other)
  Sender: FDA-Public Use
  Company Number: FR-MERCK KGAA-2036741

PATIENT
  Age: 24 Year
  Sex: Female

DRUGS (2)
  1. NOVOTHYROX [Suspect]
     Active Substance: LEVOTHYROXINE SODIUM
     Indication: GOITRE
     Route: 048
     Dates: start: 201706
  2. NOVOTHYROX [Suspect]
     Active Substance: LEVOTHYROXINE SODIUM

REACTIONS (2)
  - Blood thyroid stimulating hormone increased [Unknown]
  - Fatigue [Unknown]

NARRATIVE: CASE EVENT DATE: 201707
